FAERS Safety Report 11610925 (Version 1)
Quarter: 2015Q4

REPORT INFORMATION
  Report Type: Spontaneous
  Country: US (occurrence: US)
  Receive Date: 20151008
  Receipt Date: 20151008
  Transmission Date: 20160304
  Serious: No
  Sender: FDA-Public Use
  Company Number: US-PFIZER INC-2015332322

PATIENT
  Age: 74 Year
  Sex: Female
  Weight: 82 kg

DRUGS (17)
  1. GABAPENTIN. [Concomitant]
     Active Substance: GABAPENTIN
     Dosage: 300 MG, 3X/DAY
  2. IBUPROFEN. [Concomitant]
     Active Substance: IBUPROFEN
     Dosage: 800 MG, 3X/DAY
  3. CALCIUM WITH D [Concomitant]
     Active Substance: CALCIUM\VITAMIN D
     Dosage: 600 MG, UNK
  4. HCTZ [Concomitant]
     Active Substance: HYDROCHLOROTHIAZIDE
     Dosage: 12.5 MG A DAY
  5. COQ 10 [Concomitant]
     Active Substance: UBIDECARENONE
     Dosage: 100 MG, UNK
  6. CARVEDILOL. [Concomitant]
     Active Substance: CARVEDILOL
     Dosage: 12.5 MG, 2X/DAY
  7. OMEPRAZOLE. [Concomitant]
     Active Substance: OMEPRAZOLE
     Dosage: 40 MG, 2X/DAY
  8. CRESTOR [Concomitant]
     Active Substance: ROSUVASTATIN CALCIUM
     Dosage: 5 MG, 2X/DAY
  9. ASPIRIN. [Concomitant]
     Active Substance: ASPIRIN
     Dosage: 81 MG, 2X/DAY
  10. VITAMIN D [Concomitant]
     Active Substance: CHOLECALCIFEROL
     Dosage: 1000 IU, UNK
  11. LYRICA [Suspect]
     Active Substance: PREGABALIN
     Indication: FRACTURED SACRUM
  12. COLACE [Concomitant]
     Active Substance: DOCUSATE SODIUM
     Dosage: 100 MG 3 PER DAY
  13. CHONDROITIN/GLUCOSAMINE/MSM [Concomitant]
     Dosage: 1200 (CHONDROITIN) +1500(GLUCOSAMINE) +700(MSM)
  14. BACLOFEN. [Concomitant]
     Active Substance: BACLOFEN
     Dosage: 20 MG, 2X/DAY
  15. ENALAPRIL [Concomitant]
     Active Substance: ENALAPRIL
     Dosage: 20 MG, 2X/DAY
  16. BIOTIN [Concomitant]
     Active Substance: BIOTIN
     Dosage: 10000 MEQ, DAILY
  17. LYRICA [Suspect]
     Active Substance: PREGABALIN
     Indication: NERVE INJURY
     Dosage: 75 MG, UNK
     Dates: start: 20150321, end: 201505

REACTIONS (3)
  - Body height decreased [Unknown]
  - Drug ineffective for unapproved indication [Unknown]
  - Oedema [Unknown]

NARRATIVE: CASE EVENT DATE: 2015
